FAERS Safety Report 7866095-8 (Version None)
Quarter: 2011Q4

REPORT INFORMATION
  Report Type: 
  Country: None (occurrence: None)
  Receive Date: 20111028
  Receipt Date: 20110421
  Transmission Date: 20120403
  Serious: No
  Sender: FDA-Public Use
  Company Number: US-GLAXOSMITHKLINE-A0924010A

PATIENT
  Age: 71 Year
  Sex: Male

DRUGS (7)
  1. PROAIR HFA [Concomitant]
  2. METOPROLOL TARTRATE [Concomitant]
  3. ZOLPIDEM [Concomitant]
  4. HYDROCODONE BITARTRATE [Concomitant]
  5. ADVAIR DISKUS 100/50 [Suspect]
     Indication: CHRONIC OBSTRUCTIVE PULMONARY DISEASE
     Dosage: 1PUFF TWICE PER DAY
     Route: 055
     Dates: start: 20100301
  6. SPIRIVA [Concomitant]
  7. LOVASTATIN [Concomitant]

REACTIONS (2)
  - DRUG INEFFECTIVE [None]
  - PRODUCT QUALITY ISSUE [None]
